FAERS Safety Report 10707986 (Version 2)
Quarter: 2022Q3

REPORT INFORMATION
  Report Type: Report from Study
  Country: UA (occurrence: UA)
  Receive Date: 20150113
  Receipt Date: 20220821
  Transmission Date: 20221027
  Serious: Yes (Hospitalization, Other)
  Sender: FDA-Public Use
  Company Number: UA-GLAXOSMITHKLINE-UA2015000715

PATIENT
  Age: 46 Year
  Sex: Male

DRUGS (3)
  1. EZOGABINE [Suspect]
     Active Substance: EZOGABINE
     Indication: Partial seizures
     Dosage: 200 MG, TID
     Route: 048
     Dates: start: 20120925, end: 20121225
  2. EZOGABINE [Suspect]
     Active Substance: EZOGABINE
     Dosage: 250 MG, UNK
     Route: 048
     Dates: start: 20121226, end: 20130325
  3. EZOGABINE [Suspect]
     Active Substance: EZOGABINE
     Dosage: 200 MG, UNK
     Route: 048
     Dates: start: 20130326, end: 20141116

REACTIONS (1)
  - Epileptic psychosis [Recovered/Resolved]

NARRATIVE: CASE EVENT DATE: 20141116
